APPROVED DRUG PRODUCT: TERIFLUNOMIDE
Active Ingredient: TERIFLUNOMIDE
Strength: 7MG
Dosage Form/Route: TABLET;ORAL
Application: A209710 | Product #001 | TE Code: AB
Applicant: SANDOZ INC
Approved: Jan 3, 2019 | RLD: No | RS: No | Type: RX